FAERS Safety Report 4392037-6 (Version None)
Quarter: 2004Q3

REPORT INFORMATION
  Report Type: 
  Country: None (occurrence: None)
  Receive Date: 20040708
  Receipt Date: 20040622
  Transmission Date: 20050211
  Serious: Yes (Other)
  Sender: FDA-Public Use
  Company Number: PHNU2004DE02251

PATIENT
  Sex: Male
  Weight: 72 kg

DRUGS (1)
  1. VOLTAREN [Suspect]

REACTIONS (1)
  - MALIGNANT ASCITES [None]
